FAERS Safety Report 9051369 (Version 3)
Quarter: 2013Q1

REPORT INFORMATION
  Report Type: Spontaneous
  Country: US (occurrence: US)
  Receive Date: 20130206
  Receipt Date: 20130313
  Transmission Date: 20140127
  Serious: Yes (Hospitalization, Other)
  Sender: FDA-Public Use
  Company Number: US-PFIZER INC-2013047531

PATIENT
  Age: 65 Year
  Sex: Female
  Weight: 63.49 kg

DRUGS (23)
  1. TOVIAZ [Suspect]
     Indication: MICTURITION URGENCY
     Dosage: 8 MG, 1X/DAY (QHS)
     Route: 048
     Dates: start: 2011
  2. SYNTHROID [Concomitant]
     Indication: HYPOTHYROIDISM
     Dosage: 50 MCG, 1X/DAY (DAILY IN THE MORNING)
     Route: 048
  3. CYTOMEL [Concomitant]
     Indication: HYPOTHYROIDISM
     Dosage: 10 MCG DAILY (TWO TABLETS OF 5 MCG DAILY)
     Route: 048
  4. CYTOMEL [Concomitant]
     Dosage: 5 MCG, IN THE MORNING
  5. ABILIFY [Concomitant]
     Indication: ANXIETY
     Dosage: 2 MG, 1X/DAY (DAILY, IN THE MORNING)
     Route: 048
  6. DEPAKOTE ER [Concomitant]
     Indication: BIPOLAR DISORDER
     Dosage: 250 MG, 3X/DAY, AT BEDTIME
     Route: 048
  7. TRAZODONE [Concomitant]
     Indication: SLEEP DISORDER
     Dosage: 50 MG, DAILY
     Route: 048
  8. TRAZODONE [Concomitant]
     Indication: DEPRESSION
  9. B COMPLEX [Concomitant]
     Indication: METABOLIC DISORDER
     Dosage: 1 DF, 1X/DAY (1CAPLET)
     Route: 048
  10. CALCIUM WITH VITAMIN D [Concomitant]
     Indication: SUPPLEMENTATION THERAPY
     Dosage: 500 MG, DAILY
     Route: 048
  11. CALCIUM WITH VITAMIN D [Concomitant]
     Dosage: 400 IU, 1X/DAY (A.M)
  12. VITAMIN D [Concomitant]
     Indication: SUPPLEMENTATION THERAPY
     Dosage: 800 IU - 1000 IU
     Route: 048
     Dates: start: 201205
  13. VITAMIN D [Concomitant]
     Dosage: 2000 IU, 1X/DAY, NOON
     Route: 048
  14. DULCOLAX [Concomitant]
     Dosage: 100 MG, 2X/DAY
     Route: 048
  15. FISH OIL [Concomitant]
     Dosage: 1000 MG, DAILY
     Route: 048
  16. CHONDROITIN/GLUCOSAMINE [Concomitant]
     Dosage: 1 DF, 1X/DAY
     Route: 048
  17. MINOCYCLINE [Concomitant]
     Dosage: 100 MG, ALTERNATE DAY
     Route: 048
     Dates: end: 20130128
  18. PRILOSEC [Concomitant]
     Indication: HYPERCHLORHYDRIA
     Dosage: 20 MG, 2X/DAY, IN THE MORNING AND NOON, 20 MIN BEFORE EATING
  19. KETOCONAZOLE [Concomitant]
     Indication: ROSACEA
     Dosage: AS NEEDED, IN THE MORNING
     Route: 061
  20. LACTULOSE [Concomitant]
     Indication: CONSTIPATION
     Dosage: 10 G, UNK
     Route: 048
  21. STOOL SOFTENER [Concomitant]
     Dosage: 100 MG, 2X/DAY (IN THE MORNING AND NOON)
  22. CALCIUM [Concomitant]
     Indication: SUPPLEMENTATION THERAPY
     Dosage: 500 MG, NOON
  23. LEVOTHROID [Concomitant]
     Indication: HYPOTHYROIDISM
     Dosage: 50 MCG, 1X/DAY (DAILY IN THE MORNING)

REACTIONS (2)
  - Large intestine perforation [Unknown]
  - Lymphoma [Not Recovered/Not Resolved]
